FAERS Safety Report 17418320 (Version 1)
Quarter: 2020Q1

REPORT INFORMATION
  Report Type: Spontaneous
  Country: GB (occurrence: GB)
  Receive Date: 20200214
  Receipt Date: 20200214
  Transmission Date: 20200409
  Serious: Yes (Other)
  Sender: FDA-Public Use
  Company Number: GB-BRISTOL-MYERS SQUIBB COMPANY-BMS-2020-010879

PATIENT
  Age: 5 Decade
  Sex: Female

DRUGS (2)
  1. INTERLEUKIN-2 [Concomitant]
     Active Substance: ALDESLEUKIN
     Indication: PRODUCT USED FOR UNKNOWN INDICATION
     Route: 065
  2. NIVOLUMAB [Suspect]
     Active Substance: NIVOLUMAB
     Indication: METASTATIC RENAL CELL CARCINOMA
     Dosage: UNAV
     Route: 065

REACTIONS (3)
  - Melaena [Unknown]
  - Malignant neoplasm progression [Unknown]
  - Gastric mucosal lesion [Unknown]
